FAERS Safety Report 5851243-1 (Version None)
Quarter: 2008Q3

REPORT INFORMATION
  Report Type: 
  Country: None (occurrence: None)
  Receive Date: 20080820
  Receipt Date: 20080811
  Transmission Date: 20090109
  Serious: Yes (Hospitalization)
  Sender: FDA-Public Use
  Company Number: JP-GENENTECH-265121

PATIENT
  Age: 66 Year
  Sex: Male

DRUGS (7)
  1. RITUXAN [Suspect]
     Indication: B-CELL LYMPHOMA RECURRENT
     Dosage: 375 MG/KG, 1/MONTH
     Route: 065
     Dates: start: 20020501, end: 20020701
  2. PIRARUBICIN [Concomitant]
     Indication: LYMPHOMA
     Dosage: 50 MG, UNK
     Dates: start: 20020501
  3. CYCLOPHOSPHAMIDE [Concomitant]
     Indication: LYMPHOMA
     Dosage: 1000 MG, UNK
     Dates: start: 20020501
  4. VINCRISTINE [Concomitant]
     Indication: LYMPHOMA
     Dosage: 2 MG, DAY 2
     Dates: start: 20020501
  5. PREDNISOLONE [Concomitant]
     Indication: LYMPHOMA
     Dosage: 100 MG, DAY 2-6
     Dates: start: 20020501
  6. ACETAMINOPHEN [Concomitant]
     Indication: DRUG USE FOR UNKNOWN INDICATION
  7. DIPHENHYDRAMINE HCL [Concomitant]
     Indication: DRUG USE FOR UNKNOWN INDICATION

REACTIONS (1)
  - ACUTE RESPIRATORY DISTRESS SYNDROME [None]
